FAERS Safety Report 12867222 (Version 1)
Quarter: 2016Q4

REPORT INFORMATION
  Report Type: Spontaneous
  Country: US (occurrence: US)
  Receive Date: 20161020
  Receipt Date: 20161020
  Transmission Date: 20170207
  Serious: No
  Sender: FDA-Public Use
  Company Number: US-JAZZ-2016-US-014852

PATIENT
  Sex: Female

DRUGS (21)
  1. XYREM [Suspect]
     Active Substance: SODIUM OXYBATE
     Indication: NARCOLEPSY
     Dosage: 2.25 G, BID
     Dates: start: 201307, end: 2014
  2. CHIAS OMEGA 3 [Concomitant]
  3. TOVIAZ [Concomitant]
     Active Substance: FESOTERODINE FUMARATE
  4. INDERAL [Concomitant]
     Active Substance: PROPRANOLOL HYDROCHLORIDE
  5. XYREM [Suspect]
     Active Substance: SODIUM OXYBATE
     Indication: CATAPLEXY
     Dosage: 2.5 G, BID
     Route: 048
     Dates: start: 201412, end: 201601
  6. VITAMIN D3 [Concomitant]
     Active Substance: CHOLECALCIFEROL
  7. OLIVE OIL [Concomitant]
     Active Substance: OLIVE OIL
  8. TRAMADOL HCL [Concomitant]
     Active Substance: TRAMADOL HYDROCHLORIDE
  9. LEVOTHYROXINE SODIUM. [Concomitant]
     Active Substance: LEVOTHYROXINE SODIUM
  10. NUVIGIL [Concomitant]
     Active Substance: ARMODAFINIL
  11. FLAXSEED [Concomitant]
     Active Substance: FLAX SEED
  12. CALCIUM CARBONATE. [Concomitant]
     Active Substance: CALCIUM CARBONATE
  13. XYREM [Suspect]
     Active Substance: SODIUM OXYBATE
     Dosage: 3.25 G, BID
     Route: 048
     Dates: start: 201601
  14. FOLIC ACID. [Concomitant]
     Active Substance: FOLIC ACID
  15. IBUPROFEN. [Concomitant]
     Active Substance: IBUPROFEN
  16. VITAMIN E [Concomitant]
     Active Substance: .ALPHA.-TOCOPHEROL
  17. EVENING PRIMROSE OIL [Concomitant]
     Active Substance: EVENING PRIMROSE OIL
  18. MIDODRINE HCL [Concomitant]
     Active Substance: MIDODRINE HYDROCHLORIDE
  19. MULTIVITAMINS [Concomitant]
     Active Substance: VITAMINS
  20. PROTEIN [Concomitant]
     Active Substance: PROTEIN
  21. PROVIGIL [Concomitant]
     Active Substance: MODAFINIL

REACTIONS (3)
  - Neuropathy peripheral [Not Recovered/Not Resolved]
  - Skin discolouration [Not Recovered/Not Resolved]
  - Osteoporosis [Not Recovered/Not Resolved]
